FAERS Safety Report 9009122 (Version 1)
Quarter: 2013Q1

REPORT INFORMATION
  Report Type: Spontaneous
  Country: US (occurrence: US)
  Receive Date: 20130111
  Receipt Date: 20130111
  Transmission Date: 20140127
  Serious: No
  Sender: FDA-Public Use
  Company Number: US-GLAXOSMITHKLINE-A1000753A

PATIENT
  Age: 79 Year
  Sex: Male

DRUGS (8)
  1. JALYN [Suspect]
     Indication: BENIGN PROSTATIC HYPERPLASIA
     Route: 048
     Dates: start: 20120118, end: 20120425
  2. FLOMAX [Concomitant]
  3. BENAZEPRIL [Concomitant]
  4. ATENOLOL [Concomitant]
  5. HCTZ/TRIAMTERENE [Concomitant]
  6. ASPIRIN [Concomitant]
  7. ISOSORBIDE MONONITRATE [Concomitant]
  8. PRAVASTATIN [Concomitant]

REACTIONS (2)
  - Breast enlargement [Not Recovered/Not Resolved]
  - Breast tenderness [Unknown]
